FAERS Safety Report 9413113 (Version 1)
Quarter: 2013Q3

REPORT INFORMATION
  Report Type: Spontaneous
  Country: US (occurrence: US)
  Receive Date: 20130722
  Receipt Date: 20130722
  Transmission Date: 20140515
  Serious: No
  Sender: FDA-Public Use
  Company Number: US-TEVA-419833USA

PATIENT
  Sex: Female

DRUGS (1)
  1. PROAIR HFA [Suspect]

REACTIONS (2)
  - Dyspnoea [Unknown]
  - Inappropriate schedule of drug administration [Unknown]
